FAERS Safety Report 24904391 (Version 1)
Quarter: 2025Q1

REPORT INFORMATION
  Report Type: Spontaneous
  Country: JP (occurrence: JP)
  Receive Date: 20250130
  Receipt Date: 20250130
  Transmission Date: 20250409
  Serious: Yes (Hospitalization, Disabling, Other)
  Sender: BRISTOL-MYERS SQUIBB COMPANY
  Company Number: JP-BRISTOL-MYERS SQUIBB COMPANY-2025-009984

PATIENT
  Age: 73 Year
  Sex: Male

DRUGS (5)
  1. VIDAZA [Suspect]
     Active Substance: AZACITIDINE
     Indication: Acute myeloid leukaemia
     Route: 042
     Dates: start: 202209
  2. VYXEOS [Suspect]
     Active Substance: CYTARABINE\DAUNORUBICIN
     Indication: Acute myeloid leukaemia
     Dosage: 180 UNITS/M^2 DAILY
     Route: 041
     Dates: start: 20240909, end: 20240913
  3. CYTARABINE [Suspect]
     Active Substance: CYTARABINE
     Indication: Acute myeloid leukaemia
     Route: 042
     Dates: start: 202207
  4. VENCLEXTA [Concomitant]
     Active Substance: VENETOCLAX
     Indication: Acute myeloid leukaemia
     Dates: start: 202209
  5. DAUNORUBICIN HYDROCHLORIDE [Concomitant]
     Active Substance: DAUNORUBICIN HYDROCHLORIDE
     Indication: Acute myeloid leukaemia
     Dates: start: 202207

REACTIONS (9)
  - Transformation to acute myeloid leukaemia [Unknown]
  - Drug ineffective [Unknown]
  - Neutropenia [Recovered/Resolved]
  - Thrombocytopenia [Recovered/Resolved]
  - Craniocerebral injury [Recovered/Resolved with Sequelae]
  - Cerebral haemorrhage [Recovered/Resolved with Sequelae]
  - Pyrexia [Unknown]
  - Rash [Unknown]
  - Myelodysplastic syndrome [Unknown]

NARRATIVE: CASE EVENT DATE: 20240101
